FAERS Safety Report 5615572-9 (Version None)
Quarter: 2008Q1

REPORT INFORMATION
  Report Type: 
  Country: None (occurrence: None)
  Receive Date: 20080201
  Receipt Date: 20080117
  Transmission Date: 20080703
  Serious: Yes (Other)
  Sender: FDA-Public Use
  Company Number: PHBS2008TR01201

PATIENT
  Age: 48 Year
  Sex: Female

DRUGS (1)
  1. VISUDYNE [Suspect]
     Indication: CHORIORETINOPATHY
     Dosage: 6 MG/M^2 ONCE IV
     Route: 042

REACTIONS (4)
  - CHOROIDAL NEOVASCULARISATION [None]
  - DISEASE PROGRESSION [None]
  - METAMORPHOPSIA [None]
  - VISUAL ACUITY REDUCED [None]
